FAERS Safety Report 19944472 (Version 1)
Quarter: 2021Q4

REPORT INFORMATION
  Report Type: 
  Country: US (occurrence: US)
  Receive Date: 20211011
  Receipt Date: 20211011
  Transmission Date: 20220303
  Serious: No
  Sender: FDA-Public Use
  Company Number: US-C B FLEET CO INC-202105-US-001702

PATIENT
  Age: 62 Year
  Sex: Female

DRUGS (1)
  1. MONISTAT 1 COMBINATION PACK [Suspect]
     Active Substance: MICONAZOLE NITRATE
     Indication: Fungal infection
     Dosage: USED 1 DOSE

REACTIONS (4)
  - Vaginal haemorrhage [Recovered/Resolved]
  - Vulvovaginal burning sensation [Recovered/Resolved]
  - Vulvovaginal swelling [Not Recovered/Not Resolved]
  - Abdominal pain [Not Recovered/Not Resolved]
